FAERS Safety Report 16763357 (Version 1)
Quarter: 2019Q3

REPORT INFORMATION
  Report Type: Spontaneous
  Country: GB (occurrence: GB)
  Receive Date: 20190902
  Receipt Date: 20190902
  Transmission Date: 20191005
  Serious: Yes (Life-Threatening, Hospitalization, Other)
  Sender: FDA-Public Use
  Company Number: GB-SUN PHARMACEUTICAL INDUSTRIES LTD-2019RR-219297

PATIENT
  Age: 47 Year
  Sex: Female
  Weight: 74.38 kg

DRUGS (1)
  1. CLARITHROMYCIN. [Suspect]
     Active Substance: CLARITHROMYCIN
     Indication: TONSILLITIS
     Dosage: 1000 MILLIGRAM, DAILY
     Route: 048
     Dates: start: 20190115, end: 20190116

REACTIONS (4)
  - Documented hypersensitivity to administered product [Unknown]
  - Generalised tonic-clonic seizure [Recovered/Resolved]
  - Depressed mood [Unknown]
  - Emotional distress [Unknown]

NARRATIVE: CASE EVENT DATE: 20190116
